FAERS Safety Report 16173563 (Version 1)
Quarter: 2019Q2

REPORT INFORMATION
  Report Type: Spontaneous
  Country: US (occurrence: US)
  Receive Date: 20190408
  Receipt Date: 20190408
  Transmission Date: 20190711
  Serious: Yes (Other)
  Sender: FDA-Public Use
  Company Number: None

PATIENT
  Sex: Female
  Weight: 60 kg

DRUGS (9)
  1. PANTOPRAZOLE [Concomitant]
     Active Substance: PANTOPRAZOLE
  2. EXEMESTANE. [Concomitant]
     Active Substance: EXEMESTANE
  3. BENZTROPINE. [Concomitant]
     Active Substance: BENZTROPINE
  4. IBRANCE [Suspect]
     Active Substance: PALBOCICLIB
     Indication: BREAST CANCER
     Dosage: ?          OTHER FREQUENCY:QD 3 WK ON 1WK OFF;?
     Route: 048
     Dates: start: 20171221
  5. LOSARTAN. [Concomitant]
     Active Substance: LOSARTAN
  6. ASPIRIN. [Concomitant]
     Active Substance: ASPIRIN
  7. CITALOPRAM [Concomitant]
     Active Substance: CITALOPRAM HYDROBROMIDE
  8. CYCLOBENZAPRINE. [Concomitant]
     Active Substance: CYCLOBENZAPRINE
  9. VITAMIN D NOS [Concomitant]
     Active Substance: VITAMIN D NOS

REACTIONS (2)
  - Therapy cessation [None]
  - Blood count abnormal [None]
